FAERS Safety Report 18648510 (Version 6)
Quarter: 2021Q3

REPORT INFORMATION
  Report Type: Spontaneous
  Country: US (occurrence: US)
  Receive Date: 20201222
  Receipt Date: 20210709
  Transmission Date: 20211014
  Serious: Yes (Hospitalization, Other)
  Sender: FDA-Public Use
  Company Number: US-PFIZER INC-2020505699

PATIENT
  Age: 74 Year
  Sex: Female

DRUGS (6)
  1. IBRANCE [Suspect]
     Active Substance: PALBOCICLIB
     Indication: BREAST CANCER
     Dosage: 125 MG
     Dates: end: 20201130
  2. ASPIRIN [ACETYLSALICYLIC ACID] [Concomitant]
     Active Substance: ASPIRIN
     Indication: ANTICOAGULANT THERAPY
     Dosage: 81 MG, DAILY
  3. METOPROLOL. [Concomitant]
     Active Substance: METOPROLOL
     Indication: ATRIAL FIBRILLATION
     Dosage: UNK
  4. ASPIRIN [ACETYLSALICYLIC ACID] [Concomitant]
     Active Substance: ASPIRIN
     Indication: ATRIAL FIBRILLATION
  5. IBRANCE [Suspect]
     Active Substance: PALBOCICLIB
     Dosage: 100 MG
     Dates: start: 202003, end: 20210123
  6. IBRANCE [Suspect]
     Active Substance: PALBOCICLIB
     Dosage: 100 MG
     Dates: start: 20210314

REACTIONS (19)
  - Fatigue [Unknown]
  - Arthralgia [Recovered/Resolved]
  - Limb injury [Recovered/Resolved]
  - Product dose omission issue [Unknown]
  - Flat affect [Unknown]
  - Decreased appetite [Unknown]
  - Oral pain [Unknown]
  - Joint swelling [Unknown]
  - Mouth injury [Recovered/Resolved]
  - Heart rate decreased [Unknown]
  - Fall [Unknown]
  - Hypertension [Unknown]
  - White blood cell count abnormal [Recovered/Resolved]
  - Concussion [Unknown]
  - Asthenia [Unknown]
  - Gait disturbance [Unknown]
  - Mental fatigue [Unknown]
  - Stress [Unknown]
  - Hypotension [Unknown]

NARRATIVE: CASE EVENT DATE: 20201128
